FAERS Safety Report 19727910 (Version 1)
Quarter: 2021Q3

REPORT INFORMATION
  Report Type: Spontaneous
  Country: US (occurrence: US)
  Receive Date: 20210820
  Receipt Date: 20210820
  Transmission Date: 20211014
  Serious: Yes (Other)
  Sender: FDA-Public Use
  Company Number: US-MYLANLABS-2021M1053057

PATIENT
  Sex: Male

DRUGS (24)
  1. NALOXONE [Suspect]
     Active Substance: NALOXONE
     Dosage: 0.125MG THREE TIMES DAILY ON DAY 5
     Route: 060
  2. NALOXONE [Suspect]
     Active Substance: NALOXONE
     Dosage: 4 MILLIGRAM, QD 4 MILLIGRAM, QD ON DAY 12 ONWARDS
     Route: 060
  3. BUPRENORPHINE. [Suspect]
     Active Substance: BUPRENORPHINE
     Indication: DRUG USE DISORDER
     Dosage: UNK
     Route: 065
  4. BUPRENORPHINE. [Suspect]
     Active Substance: BUPRENORPHINE
     Dosage: 12 MILLIGRAM, QD ON DAY 11
     Route: 060
  5. BUPRENORPHINE. [Suspect]
     Active Substance: BUPRENORPHINE
     Dosage: 16 MILLIGRAM, QD ON DAY 12 ONWARDS
     Route: 060
  6. NALOXONE [Suspect]
     Active Substance: NALOXONE
     Indication: DRUG USE DISORDER
     Dosage: 0.125 MILLIGRAM, BID DAY 4
     Route: 060
  7. NALOXONE [Suspect]
     Active Substance: NALOXONE
     Dosage: 0.25 MILLIGRAM, BID DAY 6
     Route: 060
  8. NALOXONE [Suspect]
     Active Substance: NALOXONE
     Dosage: 0.5 MILLIGRAM, BID DAY 7
     Route: 060
  9. NALOXONE [Suspect]
     Active Substance: NALOXONE
     Dosage: 0.5 MG THREE TIMES DAILY ON DAY 8
     Route: 060
  10. METHADONE [Suspect]
     Active Substance: METHADONE HYDROCHLORIDE
     Indication: DRUG USE DISORDER
     Dosage: DOSE RANGE 75?120 MG
     Route: 048
  11. NALOXONE [Suspect]
     Active Substance: NALOXONE
     Dosage: 3 MILLIGRAM, QD ON DAY 11
     Route: 060
  12. BUPRENORPHINE. [Suspect]
     Active Substance: BUPRENORPHINE
     Dosage: 1 MILLIGRAM, BID DAY 6
     Route: 060
  13. BUPRENORPHINE. [Suspect]
     Active Substance: BUPRENORPHINE
     Dosage: 2MG THREE TIMES DAILY ON DAY 8
     Route: 060
  14. BUPRENORPHINE. [Suspect]
     Active Substance: BUPRENORPHINE
     Indication: DRUG USE DISORDER
     Dosage: 0.5 MILLIGRAM, BID DAY 4
     Route: 060
  15. NALOXONE [Suspect]
     Active Substance: NALOXONE
     Dosage: 0.5 MILLIGRAM, QID DAY 9
     Route: 060
  16. NALOXONE [Suspect]
     Active Substance: NALOXONE
     Dosage: 1MG THREE TIMES DAILY ON DAY 10
     Route: 060
  17. NALOXONE [Suspect]
     Active Substance: NALOXONE
     Dosage: 1 MILLIGRAM ADDITIONAL DOSE ON DAY 11
     Route: 060
  18. METHADONE [Suspect]
     Active Substance: METHADONE HYDROCHLORIDE
     Dosage: 75 MILLIGRAM, QD HE WAS MAINTAINED ON 75 MG OF ORAL METHADONE
     Route: 048
  19. BUPRENORPHINE. [Suspect]
     Active Substance: BUPRENORPHINE
     Indication: DRUG USE DISORDER
     Dosage: 5 MICROGRAM, QH TRANSCUTANEOUS
     Route: 003
  20. BUPRENORPHINE. [Suspect]
     Active Substance: BUPRENORPHINE
     Dosage: 2 MILLIGRAM, QID DAY 9
     Route: 060
  21. BUPRENORPHINE. [Suspect]
     Active Substance: BUPRENORPHINE
     Dosage: 4MG THREE TIMES DAILY ON DAY 10
     Route: 060
  22. BUPRENORPHINE. [Suspect]
     Active Substance: BUPRENORPHINE
     Dosage: 4 MILLIGRAM, QD ADDITIONAL DOSE ON DAY 11
     Route: 060
  23. BUPRENORPHINE. [Suspect]
     Active Substance: BUPRENORPHINE
     Dosage: 0.5MG THREE TIMES DAILY ON DAY 5
     Route: 060
  24. BUPRENORPHINE. [Suspect]
     Active Substance: BUPRENORPHINE
     Dosage: 2 MILLIGRAM, BID DAY 7
     Route: 060

REACTIONS (6)
  - Erectile dysfunction [Unknown]
  - Drug withdrawal syndrome [Unknown]
  - Asthenia [Unknown]
  - Off label use [Unknown]
  - Endocrine disorder [Unknown]
  - Libido decreased [Unknown]
